FAERS Safety Report 4963104-0 (Version None)
Quarter: 2006Q2

REPORT INFORMATION
  Report Type: 
  Country: None (occurrence: None)
  Receive Date: 20060405
  Receipt Date: 20060329
  Transmission Date: 20061013
  Serious: Yes (Hospitalization)
  Sender: FDA-Public Use
  Company Number: JP-JPN-A200601090

PATIENT
  Age: 18 Year
  Sex: Female
  Weight: 35 kg

DRUGS (1)
  1. FLUTIDE [Suspect]
     Indication: ASTHMA
     Route: 055

REACTIONS (8)
  - ALLERGIC GRANULOMATOUS ANGIITIS [None]
  - ARTHRALGIA [None]
  - BLOOD BLISTER [None]
  - EOSINOPHILIA [None]
  - FATIGUE [None]
  - PURPURA [None]
  - PYREXIA [None]
  - RASH PAPULAR [None]
